FAERS Safety Report 5061479-8 (Version None)
Quarter: 2006Q3

REPORT INFORMATION
  Report Type: 
  Country: None (occurrence: None)
  Receive Date: 20060703
  Receipt Date: 20060418
  Transmission Date: 20061208
  Serious: No
  Sender: FDA-Public Use
  Company Number: 2006PV012253

PATIENT
  Age: 41 Year
  Sex: Female

DRUGS (2)
  1. SYMLIN [Suspect]
     Indication: DIABETES MELLITUS NON-INSULIN-DEPENDENT
     Dosage: 33 MCG;BID;SC
     Route: 058
     Dates: start: 20060330
  2. INSULIN PUMP [Concomitant]

REACTIONS (1)
  - DYSPHAGIA [None]
